FAERS Safety Report 21007568 (Version 1)
Quarter: 2022Q3

REPORT INFORMATION
  Report Type: Report from Study
  Country: AE (occurrence: AE)
  Receive Date: 20220626
  Receipt Date: 20220626
  Transmission Date: 20221027
  Serious: Yes (Death)
  Sender: FDA-Public Use
  Company Number: AE-NOVARTISPH-NVSC2022AE145672

PATIENT
  Age: 74 Year
  Sex: Female

DRUGS (1)
  1. KISQALI [Suspect]
     Active Substance: RIBOCICLIB
     Indication: Breast cancer
     Dosage: 600 MG, QD
     Route: 048
     Dates: start: 20220113, end: 20220524

REACTIONS (1)
  - Death [Fatal]

NARRATIVE: CASE EVENT DATE: 20220623
